FAERS Safety Report 19614530 (Version 3)
Quarter: 2022Q3

REPORT INFORMATION
  Report Type: Report from Study
  Country: CA (occurrence: CA)
  Receive Date: 20210727
  Receipt Date: 20220823
  Transmission Date: 20221027
  Serious: Yes (Other)
  Sender: FDA-Public Use
  Company Number: CA-TAKEDA-2020TUS003747

PATIENT
  Age: 21 Year
  Sex: Female
  Weight: 50.8 kg

DRUGS (5)
  1. VEDOLIZUMAB [Suspect]
     Active Substance: VEDOLIZUMAB
     Indication: Colitis ulcerative
     Dosage: 300 MILLIGRAM
     Route: 042
     Dates: start: 20191126
  2. VEDOLIZUMAB [Suspect]
     Active Substance: VEDOLIZUMAB
     Dosage: 300 MILLIGRAM
     Route: 042
  3. VEDOLIZUMAB [Suspect]
     Active Substance: VEDOLIZUMAB
     Dosage: 300 MILLIGRAM
     Route: 042
  4. PENTASA [Concomitant]
     Active Substance: MESALAMINE
     Dosage: 3 GRAM, BID
     Dates: start: 20160501
  5. IRON [Concomitant]
     Active Substance: IRON
     Indication: Mineral supplementation
     Dosage: UNK UNK, QD

REACTIONS (9)
  - Haematochezia [Unknown]
  - Diarrhoea [Recovered/Resolved]
  - Faeces soft [Unknown]
  - Frequent bowel movements [Unknown]
  - Body mass index increased [Unknown]
  - Weight decreased [Unknown]
  - Malaise [Unknown]
  - Abdominal pain [Unknown]
  - Fatigue [Unknown]
